FAERS Safety Report 6334309-1 (Version None)
Quarter: 2009Q3

REPORT INFORMATION
  Report Type: 
  Country: None (occurrence: None)
  Receive Date: 20090829
  Receipt Date: 20090807
  Transmission Date: 20100115
  Serious: No
  Sender: FDA-Public Use
  Company Number: US-ABBOTT-09P-163-0590095-00

PATIENT
  Sex: Male
  Weight: 80.358 kg

DRUGS (4)
  1. SIMCOR [Suspect]
     Indication: BLOOD CHOLESTEROL INCREASED
     Dosage: 500/20 MG ONCE DAILY
     Dates: start: 20090717
  2. OSTEO BI-FLEX [Concomitant]
     Indication: ARTHRALGIA
  3. AMLODIPINE [Concomitant]
     Indication: HYPERTENSION
  4. MELOXICAM [Concomitant]
     Indication: ARTHRALGIA

REACTIONS (1)
  - ABDOMINAL DISCOMFORT [None]
